FAERS Safety Report 18424979 (Version 1)
Quarter: 2020Q4

REPORT INFORMATION
  Report Type: Spontaneous
  Country: GR (occurrence: GR)
  Receive Date: 20201026
  Receipt Date: 20201026
  Transmission Date: 20210114
  Serious: Yes (Other)
  Sender: FDA-Public Use
  Company Number: GR-SUN PHARMACEUTICAL INDUSTRIES LTD-2020R1-264903

PATIENT
  Age: 44 Year
  Sex: Female

DRUGS (4)
  1. LIGNOCAINE [Suspect]
     Active Substance: LIDOCAINE HYDROCHLORIDE
     Indication: LOCAL ANAESTHESIA
     Dosage: 10 MILLIGRAM
     Route: 065
  2. ASPIRIN. [Suspect]
     Active Substance: ASPIRIN
     Indication: PRE-ECLAMPSIA
     Dosage: 150 MILLIGRAM, DAILY
     Route: 065
  3. POTASSIUM-CHLORIDE [Suspect]
     Active Substance: POTASSIUM CHLORIDE
     Indication: ASPIRATION
     Dosage: 15%, 20 MM/10 ML
     Route: 065
  4. METHYLDOPA. [Suspect]
     Active Substance: METHYLDOPA
     Indication: PRE-ECLAMPSIA
     Dosage: 1500 MILLIGRAM
     Route: 065

REACTIONS (5)
  - Exposure during pregnancy [Unknown]
  - Drug ineffective [Unknown]
  - Vaginal haemorrhage [Unknown]
  - Foetal growth restriction [Unknown]
  - Premature delivery [Unknown]
